FAERS Safety Report 6398815-6 (Version None)
Quarter: 2009Q4

REPORT INFORMATION
  Report Type: 
  Country: None (occurrence: None)
  Receive Date: 20091013
  Receipt Date: 20091005
  Transmission Date: 20100525
  Serious: Yes (Hospitalization)
  Sender: FDA-Public Use
  Company Number: DE-ABBOTT-09P-062-0589076-00

PATIENT
  Sex: Male
  Weight: 80 kg

DRUGS (6)
  1. HUMIRA [Suspect]
     Indication: PSORIASIS
     Route: 058
     Dates: start: 20090602
  2. HUMIRA [Suspect]
     Indication: RHEUMATOID ARTHRITIS
  3. INFLIXIMAB [Concomitant]
     Indication: PSORIASIS
     Dosage: WEEKLY
     Dates: start: 20070101
  4. INFLIXIMAB [Concomitant]
     Indication: RHEUMATOID ARTHRITIS
  5. METHOTREXAT [Concomitant]
     Indication: RHEUMATOID ARTHRITIS
     Dosage: 1 X 5 MG PER WEEK
  6. ALLOPURINOL [Concomitant]
     Indication: HYPERURICAEMIA
     Dosage: 150 MG OD
     Route: 048

REACTIONS (1)
  - PERONEAL NERVE PALSY [None]
